FAERS Safety Report 7133099-2 (Version None)
Quarter: 2010Q4

REPORT INFORMATION
  Report Type: 
  Country: None (occurrence: None)
  Receive Date: 20101202
  Receipt Date: 20101124
  Transmission Date: 20110411
  Serious: Yes (Other)
  Sender: FDA-Public Use
  Company Number: B0687124A

PATIENT
  Age: 35 Year
  Sex: Female

DRUGS (11)
  1. LAMIVUDINE [Suspect]
     Indication: HIV INFECTION
     Route: 065
     Dates: start: 20050901
  2. ZIAGEN [Suspect]
     Indication: HIV INFECTION
     Route: 065
     Dates: start: 20050901
  3. TELZIR [Suspect]
     Indication: HIV INFECTION
     Route: 065
  4. VIREAD [Suspect]
     Indication: HIV INFECTION
     Route: 065
  5. REYATAZ [Suspect]
     Indication: HIV INFECTION
     Route: 065
  6. NORVIR [Suspect]
     Indication: HIV INFECTION
     Route: 065
  7. VIRAMUNE [Suspect]
     Indication: HIV INFECTION
     Route: 065
  8. TIPRANAVIR + RITONAVIR [Suspect]
     Indication: HIV INFECTION
     Route: 065
     Dates: start: 20050901
  9. FUZEON [Suspect]
     Indication: HIV INFECTION
     Route: 065
     Dates: start: 20050901
  10. EFAVIRENZ [Suspect]
     Indication: HIV INFECTION
     Route: 065
  11. RITONAVIR [Suspect]
     Indication: HIV INFECTION
     Route: 065

REACTIONS (19)
  - CD4 LYMPHOCYTES DECREASED [None]
  - CYTOMEGALOVIRUS CHORIORETINITIS [None]
  - DERMATITIS ALLERGIC [None]
  - DRUG RESISTANCE [None]
  - EYE INFLAMMATION [None]
  - ILL-DEFINED DISORDER [None]
  - IMMUNE RECONSTITUTION SYNDROME [None]
  - NECROSIS [None]
  - NECROTISING RETINITIS [None]
  - PANCREATITIS ACUTE [None]
  - RETINAL DEGENERATION [None]
  - RETINAL HAEMORRHAGE [None]
  - RETINITIS [None]
  - TOXIC SKIN ERUPTION [None]
  - VISION BLURRED [None]
  - VISUAL ACUITY REDUCED [None]
  - VISUAL IMPAIRMENT [None]
  - VITREOUS FLOATERS [None]
  - VITREOUS OPACITIES [None]
